FAERS Safety Report 9262334 (Version 4)
Quarter: 2013Q3

REPORT INFORMATION
  Report Type: Report from Study
  Country: AU (occurrence: AU)
  Receive Date: 20130430
  Receipt Date: 20130906
  Transmission Date: 20140515
  Serious: Yes (Other)
  Sender: FDA-Public Use
  Company Number: PHHO2013AU005592

PATIENT
  Sex: Female

DRUGS (2)
  1. ACLASTA [Suspect]
     Dosage: 5 MG, UNK
     Route: 042
     Dates: start: 20110305
  2. ACLASTA [Suspect]
     Dosage: 5 MG, UNK
     Route: 042
     Dates: start: 20120303

REACTIONS (6)
  - Thrombosis [Unknown]
  - Local swelling [Unknown]
  - Foot fracture [Unknown]
  - Traumatic fracture [Unknown]
  - Stress fracture [Unknown]
  - Drug ineffective [Unknown]
